FAERS Safety Report 11762498 (Version 1)
Quarter: 2015Q4

REPORT INFORMATION
  Report Type: Spontaneous
  Country: DE (occurrence: DE)
  Receive Date: 20151120
  Receipt Date: 20151120
  Transmission Date: 20160304
  Serious: Yes (Hospitalization, Other)
  Sender: FDA-Public Use
  Company Number: DE-BRISTOL-MYERS SQUIBB COMPANY-15856115

PATIENT
  Age: 24 Year
  Sex: Female
  Weight: 67 kg

DRUGS (5)
  1. REYATAZ [Suspect]
     Active Substance: ATAZANAVIR SULFATE
     Indication: HIV INFECTION
     Dosage: 300 MG, QD
     Route: 048
     Dates: start: 20110618
  2. COMBIVIR [Suspect]
     Active Substance: LAMIVUDINE\ZIDOVUDINE
     Indication: HIV INFECTION
     Dosage: UNK, BID
     Route: 048
     Dates: start: 20110412
  3. VITAMINS + MINERALS [Concomitant]
     Indication: PRODUCT USED FOR UNKNOWN INDICATION
     Route: 065
  4. NORVIR [Suspect]
     Active Substance: RITONAVIR
     Indication: HIV INFECTION
     Dosage: 100 MG, QD
     Route: 048
     Dates: start: 20110618
  5. KALETRA [Suspect]
     Active Substance: LOPINAVIR\RITONAVIR
     Indication: HIV INFECTION
     Dosage: UNK, BID
     Route: 048
     Dates: start: 20110412

REACTIONS (8)
  - Ureteric dilatation [Unknown]
  - Transaminases increased [Unknown]
  - Anaemia [Unknown]
  - Hydronephrosis [Unknown]
  - Rash [Not Recovered/Not Resolved]
  - Maternal exposure during pregnancy [Recovered/Resolved]
  - Live birth [Unknown]
  - Episiotomy [Recovering/Resolving]

NARRATIVE: CASE EVENT DATE: 20110608
